FAERS Safety Report 6667606-0 (Version None)
Quarter: 2010Q2

REPORT INFORMATION
  Report Type: 
  Country: None (occurrence: None)
  Receive Date: 20100401
  Receipt Date: 20100322
  Transmission Date: 20101027
  Serious: Yes (Hospitalization)
  Sender: FDA-Public Use
  Company Number: 2009US000053

PATIENT
  Sex: Female
  Weight: 115.6672 kg

DRUGS (5)
  1. ENTEREG [Suspect]
     Indication: POSTOPERATIVE ILEUS
     Dosage: 12 MG; PO
     Route: 048
     Dates: start: 20091104
  2. INSULIN [Concomitant]
  3. LIPITOR [Concomitant]
  4. CARDIAZEM /00489701/ [Concomitant]
  5. LASIX [Concomitant]

REACTIONS (5)
  - CARDIAC FAILURE CONGESTIVE [None]
  - DILATATION VENTRICULAR [None]
  - LEFT VENTRICULAR HYPERTROPHY [None]
  - PULMONARY VALVE INCOMPETENCE [None]
  - TROPONIN T INCREASED [None]
